FAERS Safety Report 7746188-6 (Version None)
Quarter: 2011Q3

REPORT INFORMATION
  Report Type: 
  Country: None (occurrence: None)
  Receive Date: 20110912
  Receipt Date: 20110912
  Transmission Date: 20111222
  Serious: Yes (Hospitalization)
  Sender: FDA-Public Use
  Company Number: None

PATIENT
  Age: 36 Year
  Sex: Female

DRUGS (1)
  1. PHENTERMINE [Suspect]
     Indication: PROCEDURAL PAIN
     Dates: start: 20000825, end: 20000829

REACTIONS (7)
  - CONVULSION [None]
  - CONFUSIONAL STATE [None]
  - HYPOTENSION [None]
  - BRADYCARDIA [None]
  - MALAISE [None]
  - REFUSAL OF TREATMENT BY PATIENT [None]
  - COMA [None]
